FAERS Safety Report 5441084-1 (Version None)
Quarter: 2007Q3

REPORT INFORMATION
  Report Type: 
  Country: None (occurrence: None)
  Receive Date: 20070831
  Receipt Date: 20070820
  Transmission Date: 20080115
  Serious: Yes (Other)
  Sender: FDA-Public Use
  Company Number: DE-PFIZER INC-2007055986

PATIENT
  Sex: Female

DRUGS (1)
  1. NEURONTIN [Suspect]
     Indication: EPILEPSY
     Dosage: DAILY DOSE:300MG
     Route: 048

REACTIONS (1)
  - CONDITION AGGRAVATED [None]
